FAERS Safety Report 20618046 (Version 1)
Quarter: 2022Q1

REPORT INFORMATION
  Report Type: Spontaneous
  Country: US (occurrence: None)
  Receive Date: 20220321
  Receipt Date: 20220321
  Transmission Date: 20220423
  Serious: Yes (Disabling, Other)
  Sender: FDA-Public Use
  Company Number: None

PATIENT
  Age: 62 Year
  Sex: Male

DRUGS (1)
  1. HUMULIN R [Suspect]
     Active Substance: INSULIN HUMAN
     Indication: Diabetes mellitus
     Dosage: OTHER QUANTITY : 100 INJECTION(S);?FREQUENCY : TWICE A DAY;?OTHER ROUTE : INJECTED STOMACH/LEG;?
     Route: 050
     Dates: start: 20220316

REACTIONS (4)
  - Vision blurred [None]
  - Photophobia [None]
  - Blood glucose increased [None]
  - Incorrect dose administered [None]

NARRATIVE: CASE EVENT DATE: 20220317
